FAERS Safety Report 8985103 (Version 1)
Quarter: 2012Q4

REPORT INFORMATION
  Report Type: 
  Country: FR (occurrence: FR)
  Receive Date: 20121226
  Receipt Date: 20121226
  Transmission Date: 20130627
  Serious: Yes (Hospitalization)
  Sender: FDA-Public Use
  Company Number: PHHY2012FR118737

PATIENT
  Age: 32 Year
  Sex: Female

DRUGS (4)
  1. TEGRETOL [Suspect]
     Dosage: 200 mg, UNK
     Dates: start: 20120524, end: 20120612
  2. VALIUM [Suspect]
     Dosage: 5 mg, UNK
     Dates: start: 20120520, end: 20120612
  3. ROCEPHINE [Suspect]
     Dosage: 1 g, TID
     Dates: start: 20120605, end: 20120610
  4. OGASTORO [Concomitant]
     Dosage: 15 mg, UNK
     Dates: start: 20120602

REACTIONS (11)
  - Epilepsy [Unknown]
  - Toxic skin eruption [Unknown]
  - Inflammation [Unknown]
  - Rash [Recovered/Resolved]
  - Pyrexia [Unknown]
  - Rash maculo-papular [Recovered/Resolved]
  - Face oedema [Recovered/Resolved]
  - Skin lesion [Recovered/Resolved]
  - Cholestasis [Unknown]
  - Lymphopenia [Unknown]
  - Cheilitis [Unknown]
